FAERS Safety Report 9540115 (Version 1)
Quarter: 2013Q3

REPORT INFORMATION
  Report Type: Report from Study
  Country: CA (occurrence: CA)
  Receive Date: 20130920
  Receipt Date: 20130920
  Transmission Date: 20140515
  Serious: Yes (Other)
  Sender: FDA-Public Use
  Company Number: CA-JNJFOC-20130909496

PATIENT
  Age: 46 Year
  Sex: Female
  Weight: 48.1 kg

DRUGS (18)
  1. REMICADE [Suspect]
     Indication: CROHN^S DISEASE
     Route: 042
     Dates: start: 20101027
  2. WARFARIN [Suspect]
     Indication: PRODUCT USED FOR UNKNOWN INDICATION
     Route: 065
  3. MICRONOR [Suspect]
     Indication: PRODUCT USED FOR UNKNOWN INDICATION
     Route: 065
  4. DILAUDID [Concomitant]
     Route: 065
  5. MIRTAZAPINE [Concomitant]
     Route: 065
  6. ZOPICLONE [Concomitant]
     Route: 065
  7. ACTONEL [Concomitant]
     Route: 065
  8. VITAMIN B 12 [Concomitant]
     Route: 065
  9. AMITRIPTYLINE [Concomitant]
     Route: 065
  10. BENZAMYCIN [Concomitant]
     Route: 065
  11. GABAPENTIN [Concomitant]
     Route: 065
  12. SYNTHROID [Concomitant]
     Route: 065
  13. MULTIVITAMINS [Concomitant]
     Route: 065
  14. ZINC [Concomitant]
     Route: 065
  15. REACTINE [Concomitant]
     Route: 065
  16. VITAMIN D [Concomitant]
     Route: 065
  17. VITAMIN K [Concomitant]
     Route: 065
  18. MILK OF MAGNESIA [Concomitant]
     Route: 065

REACTIONS (4)
  - International normalised ratio increased [Unknown]
  - Vaginal haemorrhage [Recovered/Resolved]
  - Rectal haemorrhage [Recovered/Resolved]
  - Heart rate increased [Unknown]
